FAERS Safety Report 4975563-8 (Version None)
Quarter: 2006Q2

REPORT INFORMATION
  Report Type: 
  Country: None (occurrence: None)
  Receive Date: 20060410
  Receipt Date: 20051219
  Transmission Date: 20061013
  Serious: Yes (Hospitalization)
  Sender: FDA-Public Use
  Company Number: HU200604000061

PATIENT
  Age: 61 Year
  Sex: Female

DRUGS (3)
  1. EVISTA [Suspect]
     Indication: OSTEOPOROSIS
     Dosage: 60 MG, DAILY (1/D), ORAL
     Route: 048
     Dates: start: 20041003
  2. CALCICARD (DILTIAZEM HYDROCHLORIDE) [Concomitant]
  3. VITAMIN D [Concomitant]

REACTIONS (5)
  - ENDOMETRIAL CANCER [None]
  - IATROGENIC INJURY [None]
  - PROCEDURAL COMPLICATION [None]
  - UTERINE PERFORATION [None]
  - UTERINE POLYP [None]
